FAERS Safety Report 6024953-3 (Version None)
Quarter: 2008Q4

REPORT INFORMATION
  Report Type: 
  Country: None (occurrence: None)
  Receive Date: 20081231
  Receipt Date: 20081216
  Transmission Date: 20090506
  Serious: Yes (Hospitalization)
  Sender: FDA-Public Use
  Company Number: JP-BRISTOL-MYERS SQUIBB COMPANY-14270094

PATIENT
  Sex: Male

DRUGS (2)
  1. STOCRIN CAPS 200 MG [Suspect]
     Indication: HIV INFECTION
     Route: 048
     Dates: start: 20070322
  2. TRUVADA [Suspect]
     Indication: HIV INFECTION
     Dosage: 1 DOSAGE FORM = 1 TABLET.
     Route: 048
     Dates: start: 20070322

REACTIONS (6)
  - C-REACTIVE PROTEIN INCREASED [None]
  - HYPERTRIGLYCERIDAEMIA [None]
  - HYPOALBUMINAEMIA [None]
  - LIVER DISORDER [None]
  - PERITONITIS [None]
  - WHITE BLOOD CELL COUNT INCREASED [None]
